FAERS Safety Report 5747512-6 (Version None)
Quarter: 2008Q2

REPORT INFORMATION
  Report Type: 
  Country: None (occurrence: None)
  Receive Date: 20080523
  Receipt Date: 20080515
  Transmission Date: 20081010
  Serious: No
  Sender: FDA-Public Use
  Company Number: US-ROCHE-564816

PATIENT
  Sex: Female

DRUGS (2)
  1. ISOTRETINOIN [Suspect]
     Indication: DRUG USE FOR UNKNOWN INDICATION
     Dosage: PATIENT WAS PRESCRIBED 40 MG TWICE DAILY BUT TOOK 40 MG ONCE DAILY
     Route: 065
     Dates: start: 20080103, end: 20080425
  2. CONTRACEPTIVE [Concomitant]
     Dosage: REPORTED AS 'ORAL CONTRACEPTIVE'
     Route: 048

REACTIONS (2)
  - NO ADVERSE EVENT [None]
  - PREGNANCY [None]
